FAERS Safety Report 9435494 (Version 1)
Quarter: 2013Q3

REPORT INFORMATION
  Report Type: Spontaneous
  Country: JP (occurrence: JP)
  Receive Date: 20130730
  Receipt Date: 20130730
  Transmission Date: 20140515
  Serious: Yes (Death)
  Sender: FDA-Public Use
  Company Number: ADR-2013-01251

PATIENT
  Age: 69 Year
  Sex: Male

DRUGS (1)
  1. GABALON [Suspect]

REACTIONS (1)
  - Gastric cancer recurrent [None]
